FAERS Safety Report 10652505 (Version 3)
Quarter: 2015Q1

REPORT INFORMATION
  Report Type: Report from Study
  Country: NZ (occurrence: NZ)
  Receive Date: 20141215
  Receipt Date: 20150122
  Transmission Date: 20150720
  Serious: Yes (Other)
  Sender: FDA-Public Use
  Company Number: NZ-ARIAD-2014NZ004132

PATIENT

DRUGS (2)
  1. ICLUSIG [Suspect]
     Active Substance: PONATINIB
     Indication: CHRONIC MYELOID LEUKAEMIA
     Dosage: 45 MG, QD
     Route: 048
     Dates: start: 20140821, end: 20150112
  2. DEXAMETHASONE. [Concomitant]
     Active Substance: DEXAMETHASONE
     Indication: LEUKAEMIA RECURRENT
     Dosage: UNK

REACTIONS (7)
  - Sepsis [Unknown]
  - Splenomegaly [None]
  - Rash [None]
  - Neoplasm progression [Unknown]
  - Staphylococcal infection [None]
  - Device related infection [None]
  - Febrile neutropenia [None]

NARRATIVE: CASE EVENT DATE: 20140915
